FAERS Safety Report 7259606-7 (Version None)
Quarter: 2011Q1

REPORT INFORMATION
  Report Type: 
  Country: None (occurrence: None)
  Receive Date: 20110130
  Receipt Date: 20100910
  Transmission Date: 20110831
  Serious: No
  Sender: FDA-Public Use
  Company Number: PR-ABBOTT-10P-131-0670254-00

PATIENT
  Sex: Female
  Weight: 68.1 kg

DRUGS (2)
  1. HUMIRA [Suspect]
     Indication: RHEUMATOID ARTHRITIS
     Dosage: LAST DOSE WAS 11 SEP 2010
     Route: 058
  2. FIORICET [Concomitant]
     Indication: MIGRAINE
     Route: 048

REACTIONS (3)
  - BENIGN BREAST NEOPLASM [None]
  - TENDON DISORDER [None]
  - RASH [None]
